FAERS Safety Report 7999735-3 (Version None)
Quarter: 2011Q4

REPORT INFORMATION
  Report Type: 
  Country: None (occurrence: None)
  Receive Date: 20111221
  Receipt Date: 20111216
  Transmission Date: 20120403
  Serious: Yes (Other)
  Sender: FDA-Public Use
  Company Number: US-ASTRAZENECA-2011SE76230

PATIENT
  Sex: Male

DRUGS (4)
  1. SEROQUEL [Suspect]
     Indication: SLEEP DISORDER
     Route: 048
  2. SEROQUEL [Suspect]
     Indication: DEPRESSION
     Route: 048
  3. SYMBICORT [Suspect]
     Route: 055
  4. ASPIRIN [Concomitant]

REACTIONS (3)
  - STAB WOUND [None]
  - OFF LABEL USE [None]
  - EMPHYSEMA [None]
